FAERS Safety Report 6249176-4 (Version None)
Quarter: 2009Q2

REPORT INFORMATION
  Report Type: 
  Country: None (occurrence: None)
  Receive Date: 20090624
  Receipt Date: 20090624
  Transmission Date: 20091009
  Serious: Yes (Death)
  Sender: FDA-Public Use
  Company Number: None

PATIENT
  Sex: Male
  Weight: 122 kg

DRUGS (5)
  1. INTEGRILIN [Suspect]
     Indication: BIOPSY KIDNEY
     Dosage: 180MCG/KG BOLUS - 1 MCG/KG/MIN IV DRIP
     Route: 041
     Dates: start: 20090518, end: 20090519
  2. INTEGRILIN [Suspect]
     Indication: ANTICOAGULANT THERAPY
     Dosage: 180MCG/KG BOLUS - 0.5MCG/KG/MIN IV DRIP
     Route: 041
     Dates: start: 20090520, end: 20090520
  3. ASPIRIN [Concomitant]
  4. PLAVIX [Concomitant]
  5. INTEGRILIN [Concomitant]

REACTIONS (4)
  - ASPIRATION [None]
  - HAEMORRHAGE INTRACRANIAL [None]
  - UNRESPONSIVE TO STIMULI [None]
  - VOMITING [None]
